FAERS Safety Report 24267821 (Version 1)
Quarter: 2024Q3

REPORT INFORMATION
  Report Type: Spontaneous
  Country: ES (occurrence: ES)
  Receive Date: 20240830
  Receipt Date: 20240830
  Transmission Date: 20241016
  Serious: Yes (Life-Threatening, Hospitalization)
  Sender: ACCORD
  Company Number: ES-Accord-442871

PATIENT
  Age: 23 Year
  Sex: Male

DRUGS (8)
  1. CISPLATIN [Suspect]
     Active Substance: CISPLATIN
     Indication: Testicular germ cell tumour mixed stage III
     Dates: start: 202008, end: 202104
  2. ETOPOSIDE [Concomitant]
     Active Substance: ETOPOSIDE
     Indication: Testicular germ cell tumour mixed stage III
     Dates: start: 202008
  3. CISPLATIN [Suspect]
     Active Substance: CISPLATIN
     Indication: Metastases to lymph nodes
     Dates: start: 202008, end: 202104
  4. CISPLATIN [Suspect]
     Active Substance: CISPLATIN
     Indication: Metastases to retroperitoneum
     Dates: start: 202008, end: 202104
  5. CISPLATIN [Suspect]
     Active Substance: CISPLATIN
     Indication: Metastases to lung
     Dates: start: 202008, end: 202104
  6. ETOPOSIDE [Concomitant]
     Active Substance: ETOPOSIDE
     Indication: Metastases to retroperitoneum
     Dates: start: 202008
  7. ETOPOSIDE [Concomitant]
     Active Substance: ETOPOSIDE
     Indication: Metastases to lymph nodes
     Dates: start: 202008
  8. ETOPOSIDE [Concomitant]
     Active Substance: ETOPOSIDE
     Indication: Metastases to lung
     Dates: start: 202008

REACTIONS (7)
  - Acute coronary syndrome [Recovered/Resolved]
  - Electrocardiogram ST segment elevation [Recovered/Resolved]
  - Coronary artery thrombosis [Recovered/Resolved]
  - Atherosclerotic plaque rupture [Recovered/Resolved]
  - Pulmonary embolism [Unknown]
  - Pulmonary infarction [Unknown]
  - Endothelial dysfunction [Recovering/Resolving]

NARRATIVE: CASE EVENT DATE: 20200901
